FAERS Safety Report 9919702 (Version 4)
Quarter: 2014Q3

REPORT INFORMATION
  Report Type: Report from Study
  Country: CN (occurrence: CN)
  Receive Date: 20140224
  Receipt Date: 20140722
  Transmission Date: 20150326
  Serious: Yes (Hospitalization)
  Sender: FDA-Public Use
  Company Number: CN-BRISTOL-MYERS SQUIBB COMPANY-20221495

PATIENT
  Age: 50 Year
  Sex: Male
  Weight: 52 kg

DRUGS (3)
  1. METFORMIN HCL [Suspect]
     Active Substance: METFORMIN HYDROCHLORIDE
     Indication: TYPE 2 DIABETES MELLITUS
     Dosage: 500MG,TID FROM UNK -10FEB14
     Route: 048
     Dates: start: 20140124, end: 20140210
  2. ONGLYZA [Suspect]
     Active Substance: SAXAGLIPTIN HYDROCHLORIDE
     Indication: TYPE 2 DIABETES MELLITUS
     Dosage: NO OF DOSES:5 WITH CUMULATIVE DOSE OF 805 MG?02JAN14
     Route: 048
     Dates: start: 20130820, end: 20140128
  3. EPALRESTAT [Concomitant]
     Active Substance: EPALRESTAT
     Indication: DIABETIC NEUROPATHY
     Dosage: TABS
     Route: 048
     Dates: start: 20130805, end: 20130819

REACTIONS (1)
  - Hepatic function abnormal [Recovered/Resolved with Sequelae]

NARRATIVE: CASE EVENT DATE: 20140129
